FAERS Safety Report 6206515-8 (Version None)
Quarter: 2009Q2

REPORT INFORMATION
  Report Type: 
  Country: None (occurrence: None)
  Receive Date: 20090528
  Receipt Date: 20090525
  Transmission Date: 20091009
  Serious: Yes (Hospitalization)
  Sender: FDA-Public Use
  Company Number: FR-ASTRAZENECA-2009CG01004

PATIENT
  Age: 31747 Day
  Sex: Male

DRUGS (14)
  1. ATACAND [Suspect]
     Route: 048
  2. ALDALIX [Suspect]
     Dosage: 20 + 50 MG
     Route: 048
  3. ASPEGIC 1000 [Concomitant]
     Route: 048
  4. GAVISCON [Concomitant]
     Route: 048
  5. OGASTORO [Concomitant]
     Route: 048
  6. DURAGESIC-100 [Concomitant]
     Route: 062
  7. CELECTOL [Concomitant]
     Route: 048
  8. ATARAX [Concomitant]
     Route: 048
  9. DI-ANTALVIC [Concomitant]
     Route: 048
  10. NITROGLYCERIN [Concomitant]
     Route: 062
  11. FERROUS SULFATE TAB [Concomitant]
  12. ALUMINUM HYDROXIDE AND MAGNESIUM TRISILICATE [Concomitant]
  13. MOTILIUM [Concomitant]
  14. TIORFAN [Concomitant]

REACTIONS (3)
  - DEHYDRATION [None]
  - HYPERKALAEMIA [None]
  - RENAL FAILURE [None]
